FAERS Safety Report 9272916 (Version 1)
Quarter: 2013Q2

REPORT INFORMATION
  Report Type: Spontaneous
  Country: US (occurrence: US)
  Receive Date: 20130506
  Receipt Date: 20130506
  Transmission Date: 20140414
  Serious: Yes (Hospitalization)
  Sender: FDA-Public Use
  Company Number: US-B.I. PHARMACEUTICALS,INC./RIDGEFIELD-2013-BI-09839BP

PATIENT
  Sex: Female

DRUGS (1)
  1. MIRAPEX [Suspect]
     Indication: RESTLESS LEGS SYNDROME
     Dosage: 0.125 MG

REACTIONS (14)
  - Hallucination [Unknown]
  - Dizziness [Unknown]
  - Blood pressure abnormal [Unknown]
  - Confusional state [Unknown]
  - Gait disturbance [Unknown]
  - Sudden onset of sleep [Unknown]
  - Local swelling [Unknown]
  - Joint swelling [Unknown]
  - Myalgia [Unknown]
  - Vision blurred [Unknown]
  - Balance disorder [Not Recovered/Not Resolved]
  - Asthenia [Not Recovered/Not Resolved]
  - Memory impairment [Not Recovered/Not Resolved]
  - Drooling [Not Recovered/Not Resolved]
